FAERS Safety Report 19363854 (Version 2)
Quarter: 2021Q3

REPORT INFORMATION
  Report Type: Report from Study
  Country: CA (occurrence: CA)
  Receive Date: 20210602
  Receipt Date: 20210706
  Transmission Date: 20211014
  Serious: Yes (Hospitalization)
  Sender: FDA-Public Use
  Company Number: CA-ROCHE-2828089

PATIENT
  Age: 48 Year
  Sex: Male
  Weight: 70.5 kg

DRUGS (36)
  1. DIPHENHYDRAMINE. [Concomitant]
     Active Substance: DIPHENHYDRAMINE
     Dosage: AS NEEDED
     Route: 042
  2. DOMPERIDONE [Concomitant]
     Active Substance: DOMPERIDONE
     Dosage: AS NEEDED
  3. PANTOPRAZOLE [Concomitant]
     Active Substance: PANTOPRAZOLE
     Indication: GASTROOESOPHAGEAL REFLUX DISEASE
     Dates: start: 20210412
  4. RITUXIMAB. [Suspect]
     Active Substance: RITUXIMAB
     Indication: DIFFUSE LARGE B-CELL LYMPHOMA
     Dosage: TOTAL VOLUME PRIOR SAE 690 ML?DOSE LAST STUDY DRUG ADMIN PRIOR SAE 375 MG/M2?START DATE OF MOST RECE
     Route: 041
     Dates: start: 20210428
  5. ACETAMINOPHEN. [Concomitant]
     Active Substance: ACETAMINOPHEN
     Dosage: AS NEEDED
     Dates: start: 20210409, end: 20210409
  6. ACYCLOVIR. [Concomitant]
     Active Substance: ACYCLOVIR
  7. DEXAMETHASONE. [Concomitant]
     Active Substance: DEXAMETHASONE
     Dosage: 1 HOUR PRIOR TO CHEMOTHERAPY ON DAY 1 OF EVERY CYCLE
     Route: 042
     Dates: start: 20210409
  8. DIMENHYDRINATE. [Concomitant]
     Active Substance: DIMENHYDRINATE
  9. GRASTOFIL [Concomitant]
     Active Substance: FILGRASTIM
     Dates: start: 20210415
  10. HYDROCORTISONE. [Concomitant]
     Active Substance: HYDROCORTISONE
  11. ACETAMINOPHEN. [Concomitant]
     Active Substance: ACETAMINOPHEN
     Dosage: AS NEEDED
     Dates: start: 20210505, end: 20210505
  12. ONDANSETRON [Concomitant]
     Active Substance: ONDANSETRON
     Indication: NAUSEA
     Dosage: 1HOUR PRIOR TO CHEMOTHERAPY ON DAY 1 OF EVERY CYCLE
     Dates: start: 20210409
  13. ONDANSETRON [Concomitant]
     Active Substance: ONDANSETRON
     Indication: VOMITING
  14. ALLOPURINOL. [Concomitant]
     Active Substance: ALLOPURINOL
     Indication: TUMOUR LYSIS SYNDROME
     Dates: start: 20210408, end: 20210427
  15. RO7082859 (CD20/C3 T?CELL BISPECIFIC MAB) [Suspect]
     Active Substance: GLOFITAMAB
     Indication: DIFFUSE LARGE B-CELL LYMPHOMA
     Dosage: DATE OF MOST RECENT RO7082859 PRIOR TO SAE/AESI ON 05/MAY/2021, 12/MAY/2021?TOTAL VOLUME PRIOR SAE 2
     Route: 042
     Dates: start: 20210505
  16. OBINUTUZUMAB. [Suspect]
     Active Substance: OBINUTUZUMAB
     Indication: DIFFUSE LARGE B-CELL LYMPHOMA
     Dosage: DATE OF MOST RECENT DOSE OF OBINUTUZUMAB (1000 MG) PRIOR TO SAE: 09/APR/2021 AT 12:05 TILL 4:54 PM
     Route: 042
     Dates: start: 20210409
  17. CYCLOPHOSPHAMIDE. [Suspect]
     Active Substance: CYCLOPHOSPHAMIDE
     Indication: DIFFUSE LARGE B-CELL LYMPHOMA
     Dosage: DATE OF MOST RECENT DOSE OF CYCLOPHOSPHAMIDE WAS RECEIVED ON 09/APR/2021 AT 5:27 PM TILL 5:57 PM?DOS
     Route: 042
     Dates: start: 20210409
  18. PREDNISONE. [Concomitant]
     Active Substance: PREDNISONE
     Route: 048
     Dates: start: 20210409, end: 20210409
  19. ACETAMINOPHEN. [Concomitant]
     Active Substance: ACETAMINOPHEN
     Indication: PYREXIA
     Dosage: AS NEEDED
     Dates: start: 20210506, end: 20210506
  20. MEPERIDINE [Concomitant]
     Active Substance: MEPERIDINE
  21. PREDNISONE. [Concomitant]
     Active Substance: PREDNISONE
     Route: 048
     Dates: start: 20210505, end: 20210505
  22. DOXORUBICIN [Suspect]
     Active Substance: DOXORUBICIN
     Indication: DIFFUSE LARGE B-CELL LYMPHOMA
     Dosage: DATE OF MOST RECENT DOSE OF DOXORUBICIN PRIOR TO SAE: 09/APR/2021, 28/APR/2021?TOTAL VOLUME PRIOR AE
     Route: 042
     Dates: start: 20210409
  23. DEXAMETHASONE. [Concomitant]
     Active Substance: DEXAMETHASONE
     Route: 042
     Dates: start: 20210512, end: 20210512
  24. DIPHENHYDRAMINE. [Concomitant]
     Active Substance: DIPHENHYDRAMINE
     Dosage: AS NEEDED
     Route: 042
     Dates: start: 20210409, end: 20210409
  25. NORMAL SALINE [Concomitant]
     Active Substance: SODIUM CHLORIDE
  26. SENNA ALEXANDRINA [Concomitant]
     Active Substance: SENNA LEAF
  27. BENADRYL [Concomitant]
     Active Substance: DIPHENHYDRAMINE HYDROCHLORIDE
     Route: 042
     Dates: start: 20210428, end: 20210428
  28. VINCRISTINE [Suspect]
     Active Substance: VINCRISTINE
     Indication: DIFFUSE LARGE B-CELL LYMPHOMA
     Dosage: DATE OF MOST RECENT DOSE OF VINCRISTINE PRIOR TO SAE: 09/APR/2021, 28/APR/2021?TOTAL VOLUME PRIOR AE
     Route: 042
     Dates: start: 20210409
  29. FAMOTIDINE. [Concomitant]
     Active Substance: FAMOTIDINE
  30. SALBUTAMOL [Concomitant]
     Active Substance: ALBUTEROL
     Route: 055
  31. TYLENOL [Concomitant]
     Active Substance: ACETAMINOPHEN
     Route: 048
     Dates: start: 20210428, end: 20210428
  32. PREDNISONE. [Suspect]
     Active Substance: PREDNISONE
     Indication: DIFFUSE LARGE B-CELL LYMPHOMA
     Dosage: DATE OF MOST RECENT DOSE (100 MG) OF PREDNISONE PRIOR TO SAE: 13/APR/2021?START DATE OF MOST RECENT
     Route: 048
     Dates: start: 20210409
  33. ACETAMINOPHEN. [Concomitant]
     Active Substance: ACETAMINOPHEN
     Dosage: AS NEEDED
     Dates: start: 20210512, end: 20210512
  34. DIPHENHYDRAMINE. [Concomitant]
     Active Substance: DIPHENHYDRAMINE
     Route: 042
     Dates: start: 20210505, end: 20210505
  35. DIPHENHYDRAMINE. [Concomitant]
     Active Substance: DIPHENHYDRAMINE
     Route: 042
     Dates: start: 20210512, end: 20210512
  36. OLANZAPINE. [Concomitant]
     Active Substance: OLANZAPINE
     Dosage: AS NEEDED
     Dates: start: 20210409

REACTIONS (1)
  - Cytokine release syndrome [Recovered/Resolved]

NARRATIVE: CASE EVENT DATE: 20210506
